FAERS Safety Report 16333493 (Version 2)
Quarter: 2020Q3

REPORT INFORMATION
  Report Type: Spontaneous
  Country: US (occurrence: US)
  Receive Date: 20190520
  Receipt Date: 20200825
  Transmission Date: 20201102
  Serious: Yes (Hospitalization, Other)
  Sender: FDA-Public Use
  Company Number: US-GILEAD-2019-0408026

PATIENT
  Sex: Male
  Weight: 89.8 kg

DRUGS (46)
  1. BIKTARVY [Concomitant]
     Active Substance: BICTEGRAVIR SODIUM\EMTRICITABINE\TENOFOVIR ALAFENAMIDE FUMARATE
  2. DULOXETINE. [Concomitant]
     Active Substance: DULOXETINE
  3. EPZICOM [Concomitant]
     Active Substance: ABACAVIR SULFATE\LAMIVUDINE
  4. TRIUMEQ [Concomitant]
     Active Substance: ABACAVIR SULFATE\DOLUTEGRAVIR SODIUM\LAMIVUDINE
  5. ADDERALL [Concomitant]
     Active Substance: AMPHETAMINE ASPARTATE\AMPHETAMINE SULFATE\DEXTROAMPHETAMINE SACCHARATE\DEXTROAMPHETAMINE SULFATE
  6. HYDROXYZINE HCL [Concomitant]
     Active Substance: HYDROXYZINE HYDROCHLORIDE
  7. MYTESI [Concomitant]
     Active Substance: CROFELEMER
  8. VITAMIN D [VITAMIN D NOS] [Concomitant]
     Active Substance: VITAMIN D NOS
  9. EMTRIVA [Concomitant]
     Active Substance: EMTRICITABINE
  10. ASPIRIN [ACETYLSALICYLIC ACID] [Concomitant]
     Active Substance: ASPIRIN
  11. LATUDA [Concomitant]
     Active Substance: LURASIDONE HYDROCHLORIDE
  12. OXYCODONE AND ACETAMINOPHEN [Concomitant]
     Active Substance: ACETAMINOPHEN\OXYCODONE HYDROCHLORIDE
  13. REPATHA [Concomitant]
     Active Substance: EVOLOCUMAB
  14. SAPHRIS [Concomitant]
     Active Substance: ASENAPINE MALEATE
  15. STRATTERA [Concomitant]
     Active Substance: ATOMOXETINE HYDROCHLORIDE
  16. ZOLPIDEM [Concomitant]
     Active Substance: ZOLPIDEM TARTRATE
  17. RESTORIL [Concomitant]
     Active Substance: TEMAZEPAM
  18. AMOXICILLIN. [Concomitant]
     Active Substance: AMOXICILLIN
  19. WARFARIN SODIUM. [Concomitant]
     Active Substance: WARFARIN SODIUM
  20. ZANTAC [Concomitant]
     Active Substance: RANITIDINE HYDROCHLORIDE
  21. ETRAVIRINE [Concomitant]
     Active Substance: ETRAVIRINE
  22. LOVAZA [Concomitant]
     Active Substance: OMEGA-3-ACID ETHYL ESTERS
  23. TRAZODONE [Concomitant]
     Active Substance: TRAZODONE HYDROCHLORIDE
  24. NORVIR [Concomitant]
     Active Substance: RITONAVIR
  25. CYMBALTA [Concomitant]
     Active Substance: DULOXETINE HYDROCHLORIDE
  26. HYDROCODONE BITARTRATE AND ACETAMINOPHEN [Concomitant]
     Active Substance: ACETAMINOPHEN\HYDROCODONE BITARTRATE
  27. VENLAFAXINE [Concomitant]
     Active Substance: VENLAFAXINE HYDROCHLORIDE
  28. REPATHA [Concomitant]
     Active Substance: EVOLOCUMAB
  29. TRUVADA [Suspect]
     Active Substance: EMTRICITABINE\TENOFOVIR DISOPROXIL FUMARATE
     Indication: HIV INFECTION
     Dosage: UNK
     Route: 048
     Dates: start: 20110108, end: 201307
  30. INTELENCE [Concomitant]
     Active Substance: ETRAVIRINE
  31. REYATAZ [Concomitant]
     Active Substance: ATAZANAVIR SULFATE
  32. ALDACTONE [Concomitant]
     Active Substance: SPIRONOLACTONE
  33. CRESTOR [Concomitant]
     Active Substance: ROSUVASTATIN CALCIUM
  34. LOSARTAN. [Concomitant]
     Active Substance: LOSARTAN
  35. PRILOSEC [Concomitant]
     Active Substance: OMEPRAZOLE MAGNESIUM
  36. SULFAMETHOXAZOLE;TRIMETHOPRIM [Concomitant]
     Active Substance: SULFAMETHOXAZOLE\TRIMETHOPRIM
  37. LISINOPRIL. [Concomitant]
     Active Substance: LISINOPRIL
  38. AMPHETAMINE [Concomitant]
     Active Substance: AMPHETAMINE
  39. ZETIA [Concomitant]
     Active Substance: EZETIMIBE
  40. LIPITOR [Concomitant]
     Active Substance: ATORVASTATIN CALCIUM
  41. ATRIPLA [Suspect]
     Active Substance: EFAVIRENZ\EMTRICITABINE\TENOFOVIR DISOPROXIL FUMARATE
     Indication: HIV INFECTION
     Dosage: UNK
     Route: 048
     Dates: start: 200711, end: 20110101
  42. TIVICAY [Concomitant]
     Active Substance: DOLUTEGRAVIR SODIUM
  43. ZIAGEN [Concomitant]
     Active Substance: ABACAVIR SULFATE
  44. ATORVASTATIN [Concomitant]
     Active Substance: ATORVASTATIN
  45. MELOXICAM. [Concomitant]
     Active Substance: MELOXICAM
  46. VALSARTAN. [Concomitant]
     Active Substance: VALSARTAN

REACTIONS (9)
  - Osteopenia [Not Recovered/Not Resolved]
  - Emotional distress [Not Recovered/Not Resolved]
  - Chronic kidney disease [Not Recovered/Not Resolved]
  - Anhedonia [Not Recovered/Not Resolved]
  - Economic problem [Not Recovered/Not Resolved]
  - Acute kidney injury [Not Recovered/Not Resolved]
  - Depression [Not Recovered/Not Resolved]
  - Pain [Not Recovered/Not Resolved]
  - Anxiety [Not Recovered/Not Resolved]

NARRATIVE: CASE EVENT DATE: 2011
